FAERS Safety Report 5787886-3 (Version None)
Quarter: 2008Q2

REPORT INFORMATION
  Report Type: 
  Country: None (occurrence: None)
  Receive Date: 20080624
  Receipt Date: 20080624
  Transmission Date: 20081010
  Serious: Yes (Other)
  Sender: FDA-Public Use
  Company Number: None

PATIENT
  Age: 43 Year
  Sex: Female

DRUGS (1)
  1. ROPINIROLE [Suspect]
     Dosage: 1 TABLET Q HS PO
     Route: 048
     Dates: start: 20080622, end: 20080622

REACTIONS (5)
  - INSOMNIA [None]
  - MUSCLE SPASMS [None]
  - NERVOUSNESS [None]
  - PALPITATIONS [None]
  - PHARMACEUTICAL PRODUCT COMPLAINT [None]
